FAERS Safety Report 16465305 (Version 3)
Quarter: 2019Q2

REPORT INFORMATION
  Report Type: Spontaneous
  Country: US (occurrence: US)
  Receive Date: 20190621
  Receipt Date: 20190628
  Transmission Date: 20190711
  Serious: Yes (Other)
  Sender: FDA-Public Use
  Company Number: US-PFIZER INC-2018531284

PATIENT
  Age: 69 Year
  Sex: Male
  Weight: 111.11 kg

DRUGS (7)
  1. REVATIO [Suspect]
     Active Substance: SILDENAFIL CITRATE
     Dosage: UNK, 2X/DAY (TAKING SILDENAFIL TWICE RATHER THAN 3 TIMES A DAY)
  2. REVATIO [Suspect]
     Active Substance: SILDENAFIL CITRATE
     Indication: PULMONARY HYPERTENSION
     Dosage: 40 MG, 2X/DAY (20 MG (TAKE 2 TABLETS TWICE DAILY))
  3. REVATIO [Suspect]
     Active Substance: SILDENAFIL CITRATE
     Dosage: 80 MG, DAILY (4 TABLETS BY MOUTH DAILY)
     Route: 048
  4. REVATIO [Suspect]
     Active Substance: SILDENAFIL CITRATE
     Dosage: 120 MG, DAILY (6 TABLETS DAILY)
  5. REVATIO [Suspect]
     Active Substance: SILDENAFIL CITRATE
     Dosage: 20MG, 2 TIMES A DAY, FOR TOTAL QUANTITY 360 TABLETS
  6. REVATIO [Suspect]
     Active Substance: SILDENAFIL CITRATE
     Dosage: 2 DF, 3X/DAY
  7. REVATIO [Suspect]
     Active Substance: SILDENAFIL CITRATE
     Dosage: 40 MG, 3X/DAY (TAKE 2 TABS THREE TIMES DAILY)

REACTIONS (6)
  - Off label use [Unknown]
  - Dyspnoea [Unknown]
  - Intentional product misuse [Unknown]
  - Pulmonary arterial pressure increased [Unknown]
  - Arthritis [Unknown]
  - Weight decreased [Not Recovered/Not Resolved]
